FAERS Safety Report 8165164-5 (Version None)
Quarter: 2012Q1

REPORT INFORMATION
  Report Type: 
  Country: None (occurrence: None)
  Receive Date: 20120227
  Receipt Date: 20120224
  Transmission Date: 20120608
  Serious: No
  Sender: FDA-Public Use
  Company Number: US-PFIZER INC-2012049943

PATIENT
  Sex: Female
  Weight: 68.027 kg

DRUGS (5)
  1. OMEGA [Concomitant]
     Dosage: UNK
  2. GLUCOSAMINE [Concomitant]
     Dosage: UNK
  3. LIPITOR [Suspect]
     Indication: BLOOD CHOLESTEROL INCREASED
     Dosage: 10 MG, 1X/DAY
     Route: 048
     Dates: start: 20111201
  4. CALCIUM [Concomitant]
     Dosage: UNK
  5. BIOTIN [Concomitant]
     Dosage: UNK

REACTIONS (5)
  - DIZZINESS [None]
  - NAUSEA [None]
  - MALAISE [None]
  - MUSCLE SPASMS [None]
  - DIARRHOEA [None]
